FAERS Safety Report 13185612 (Version 3)
Quarter: 2017Q1

REPORT INFORMATION
  Report Type: Spontaneous
  Country: DE (occurrence: DE)
  Receive Date: 20170203
  Receipt Date: 20170221
  Transmission Date: 20170428
  Serious: Yes (Other)
  Sender: FDA-Public Use
  Company Number: ALCN2017DE000458

PATIENT
  Sex: Male

DRUGS (3)
  1. ISOPTO-MAXITROL [Suspect]
     Active Substance: DEXAMETHASONE\NEOMYCIN SULFATE\POLYMYXIN B SULFATE
     Indication: FURUNCLE
     Dosage: UNK
     Route: 001
  2. ANTIBIOTICS [Concomitant]
     Active Substance: UNSPECIFIED INGREDIENT
     Indication: FURUNCLE
     Dosage: UNK
     Route: 048
  3. CORTISON [Concomitant]
     Active Substance: CORTISONE ACETATE
     Indication: FURUNCLE
     Dosage: UNK
     Route: 065

REACTIONS (7)
  - Genital discomfort [Not Recovered/Not Resolved]
  - Weight decreased [Not Recovered/Not Resolved]
  - Headache [Not Recovered/Not Resolved]
  - Feeling cold [Not Recovered/Not Resolved]
  - Peripheral coldness [Not Recovered/Not Resolved]
  - Diabetes mellitus [Unknown]
  - Product use issue [Unknown]
